FAERS Safety Report 14025314 (Version 4)
Quarter: 2019Q3

REPORT INFORMATION
  Report Type: Report from Study
  Country: US (occurrence: US)
  Receive Date: 20170929
  Receipt Date: 20190920
  Transmission Date: 20191004
  Serious: No
  Sender: FDA-Public Use
  Company Number: PHHY2017US072114

PATIENT
  Age: 35 Year
  Sex: Male

DRUGS (4)
  1. LIDOCAINE. [Concomitant]
     Active Substance: LIDOCAINE
     Indication: NEOPLASM
     Dosage: UNK
     Route: 065
     Dates: start: 20170324, end: 20170324
  2. BACITRACIN. [Concomitant]
     Active Substance: BACITRACIN
     Indication: NEOPLASM
     Dosage: UNK
     Route: 065
     Dates: start: 20170324, end: 20170324
  3. CYMBALTA [Concomitant]
     Active Substance: DULOXETINE HYDROCHLORIDE
     Indication: NEURALGIA
     Dosage: UNK
     Route: 065
     Dates: start: 20170316
  4. GILENYA [Suspect]
     Active Substance: FINGOLIMOD HYDROCHLORIDE
     Indication: MULTIPLE SCLEROSIS
     Dosage: UNK, QD
     Route: 048

REACTIONS (10)
  - Dermatitis [Recovered/Resolved]
  - Depression [Unknown]
  - Rash [Recovered/Resolved]
  - Cognitive disorder [Unknown]
  - Eczema [Unknown]
  - Musculoskeletal pain [Unknown]
  - Hypertension [Recovered/Resolved]
  - Muscle spasms [Unknown]
  - Dermal cyst [Unknown]
  - Tachycardia [Unknown]

NARRATIVE: CASE EVENT DATE: 20170316
